FAERS Safety Report 5242980-0 (Version None)
Quarter: 2007Q1

REPORT INFORMATION
  Report Type: 
  Country: None (occurrence: None)
  Receive Date: 20070215
  Receipt Date: 20070130
  Transmission Date: 20070707
  Serious: Yes (Hospitalization)
  Sender: FDA-Public Use
  Company Number: 2007000091

PATIENT
  Age: 38 Year
  Sex: Female

DRUGS (2)
  1. ERLOTINIB (TABLET) [Suspect]
     Indication: NEOPLASM MALIGNANT
     Dosage: 150 MG (QD), ORAL
     Route: 048
     Dates: start: 20060927, end: 20061214
  2. CETUXIMAB (CETUXIMAB) (INJECTION FOR INFUSION) [Suspect]
     Indication: CERVIX CARCINOMA
     Dosage: 355 MG, (WEEKLY), INTRAVENOUS
     Route: 042
     Dates: start: 20060927, end: 20061214

REACTIONS (2)
  - HYPOKALAEMIA [None]
  - HYPOMAGNESAEMIA [None]
